FAERS Safety Report 7462119-0 (Version None)
Quarter: 2011Q2

REPORT INFORMATION
  Report Type: 
  Country: None (occurrence: None)
  Receive Date: 20110506
  Receipt Date: 20110502
  Transmission Date: 20111010
  Serious: Yes (Other)
  Sender: FDA-Public Use
  Company Number: JP-ROXANE LABORATORIES, INC.-2011-RO-00606RO

PATIENT
  Age: 34 Year
  Sex: Male

DRUGS (2)
  1. RISPERIDONE [Suspect]
     Indication: SCHIZOPHRENIA
     Dosage: 2 MG
  2. ZOLPIDEM [Suspect]
     Dosage: 10 MG

REACTIONS (2)
  - ERECTILE DYSFUNCTION [None]
  - HYPERPROLACTINAEMIA [None]
